FAERS Safety Report 19661316 (Version 1)
Quarter: 2021Q3

REPORT INFORMATION
  Report Type: Spontaneous
  Country: US (occurrence: US)
  Receive Date: 20210805
  Receipt Date: 20210805
  Transmission Date: 20211014
  Serious: No
  Sender: FDA-Public Use
  Company Number: US-PFIZER INC-2021386558

PATIENT
  Age: 68 Year
  Sex: Female
  Weight: 55 kg

DRUGS (4)
  1. LORBRENA [Suspect]
     Active Substance: LORLATINIB
     Dosage: 50 MG, ALTERNATE DAY
     Route: 048
     Dates: end: 20210708
  2. LORBRENA [Suspect]
     Active Substance: LORLATINIB
     Indication: LUNG CANCER METASTATIC
     Dosage: 50 MG, ALTERNATE DAY
     Route: 048
     Dates: start: 20210521, end: 20210708
  3. LORBRENA [Suspect]
     Active Substance: LORLATINIB
     Dosage: 75 MG
     Route: 048
  4. TYLENOL [Concomitant]
     Active Substance: ACETAMINOPHEN
     Dosage: UNK UNK, AS NEEDED (OCCASIONALLY)

REACTIONS (7)
  - Lipids increased [Unknown]
  - Blood urea abnormal [Unknown]
  - Insomnia [Recovering/Resolving]
  - Palpitations [Unknown]
  - Hyperhidrosis [Unknown]
  - Tremor [Unknown]
  - Intentional product misuse [Unknown]

NARRATIVE: CASE EVENT DATE: 2021
